FAERS Safety Report 6073905-6 (Version None)
Quarter: 2009Q1

REPORT INFORMATION
  Report Type: 
  Country: None (occurrence: None)
  Receive Date: 20090211
  Receipt Date: 20090206
  Transmission Date: 20090719
  Serious: Yes (Hospitalization, Disabling, Other)
  Sender: FDA-Public Use
  Company Number: US-MERCK-0808USA04312

PATIENT
  Age: 59 Year
  Sex: Female
  Weight: 89 kg

DRUGS (4)
  1. FOSAMAX [Suspect]
     Indication: OSTEOPENIA
     Route: 048
     Dates: start: 20040501, end: 20070101
  2. [THERAPY UNSPECIFIED] [Concomitant]
     Indication: HYPERTENSION
     Route: 065
     Dates: start: 19980101
  3. [THERAPY UNSPECIFIED] [Concomitant]
     Indication: HYPERLIPIDAEMIA
     Route: 065
     Dates: start: 19980101
  4. SYNTHROID [Concomitant]
     Indication: HYPOTHYROIDISM
     Route: 065

REACTIONS (12)
  - ARTERIOSCLEROSIS [None]
  - BENIGN NEOPLASM OF THYROID GLAND [None]
  - BRUXISM [None]
  - DRUG HYPERSENSITIVITY [None]
  - HERPES ZOSTER [None]
  - JAW DISORDER [None]
  - ORTHOSTATIC HYPOTENSION [None]
  - OSTEOARTHRITIS [None]
  - OSTEOMYELITIS [None]
  - PULMONARY MASS [None]
  - TEMPOROMANDIBULAR JOINT SYNDROME [None]
  - VERTIGO [None]
